FAERS Safety Report 5121059-2 (Version None)
Quarter: 2006Q4

REPORT INFORMATION
  Report Type: 
  Country: None (occurrence: None)
  Receive Date: 20061002
  Receipt Date: 20060913
  Transmission Date: 20070319
  Serious: Yes (Other)
  Sender: FDA-Public Use
  Company Number: S06-FRA-03801-01

PATIENT
  Age: 62 Year
  Sex: Female

DRUGS (1)
  1. SEROPLEX (ESCITALOPRAM) [Suspect]
     Dates: start: 20060101, end: 20060101

REACTIONS (1)
  - URTICARIA GENERALISED [None]
